FAERS Safety Report 5924812-8 (Version None)
Quarter: 2008Q4

REPORT INFORMATION
  Report Type: 
  Country: None (occurrence: None)
  Receive Date: 20081020
  Receipt Date: 20081020
  Transmission Date: 20090506
  Serious: Yes (Other)
  Sender: FDA-Public Use
  Company Number: None

PATIENT
  Sex: Female
  Weight: 85.9566 kg

DRUGS (1)
  1. LISINOPRIL [Suspect]
     Indication: HYPERTENSION
     Dosage: 40 MG DAILY PO
     Route: 048
     Dates: start: 20080401, end: 20081001

REACTIONS (2)
  - DIARRHOEA [None]
  - HYPOKALAEMIA [None]
